FAERS Safety Report 22333485 (Version 1)
Quarter: 2023Q2

REPORT INFORMATION
  Report Type: Spontaneous
  Country: US (occurrence: US)
  Receive Date: 20230517
  Receipt Date: 20230517
  Transmission Date: 20230721
  Serious: No
  Sender: FDA-Public Use
  Company Number: US-MYLANLABS-2023M1045024

PATIENT
  Sex: Male
  Weight: 68.04 kg

DRUGS (3)
  1. SEMGLEE (INSULIN GLARGINE-YFGN) [Suspect]
     Active Substance: INSULIN GLARGINE-YFGN
     Indication: Type 2 diabetes mellitus
     Dosage: 18 INTERNATIONAL UNIT, QD (18 UNITS DAILY )
     Route: 058
  2. TRAZODONE [Concomitant]
     Active Substance: TRAZODONE HYDROCHLORIDE
     Dosage: UNK
     Route: 065
  3. INSULIN LISPRO [Concomitant]
     Active Substance: INSULIN LISPRO
     Dosage: UNK
     Route: 065

REACTIONS (6)
  - Fatigue [Recovering/Resolving]
  - Weight increased [Recovering/Resolving]
  - Drug ineffective [Unknown]
  - Product monitoring error [Unknown]
  - Wrong technique in product usage process [Unknown]
  - Liquid product physical issue [Unknown]
